FAERS Safety Report 19042205 (Version 1)
Quarter: 2021Q1

REPORT INFORMATION
  Report Type: Spontaneous
  Country: JP (occurrence: JP)
  Receive Date: 20210322
  Receipt Date: 20210322
  Transmission Date: 20210420
  Serious: Yes (Death, Life-Threatening)
  Sender: FDA-Public Use
  Company Number: NVSJ2020JP012355

PATIENT
  Age: 78 Year
  Sex: Male
  Weight: 64 kg

DRUGS (4)
  1. THYRADIN [Suspect]
     Active Substance: LEVOTHYROXINE
     Indication: HYPOTHYROIDISM
     Dosage: 25 MG, QD
     Route: 048
     Dates: start: 20181129, end: 20181226
  2. MEKINIST [Suspect]
     Active Substance: TRAMETINIB DIMETHYL SULFOXIDE
     Indication: MALIGNANT MELANOMA STAGE III
     Dosage: 2 MG, QD
     Route: 048
     Dates: start: 20190219, end: 20201031
  3. TAFINLAR [Suspect]
     Active Substance: DABRAFENIB MESYLATE
     Indication: MALIGNANT MELANOMA STAGE III
     Dosage: 75 MG, BID
     Route: 048
     Dates: start: 20190219, end: 20201031
  4. THYRADIN [Suspect]
     Active Substance: LEVOTHYROXINE
     Dosage: 125 MG, QD
     Route: 048
     Dates: start: 20181227, end: 20201031

REACTIONS (7)
  - Metastases to central nervous system [Fatal]
  - Malignant melanoma stage III [Fatal]
  - Malignant neoplasm progression [Fatal]
  - Cerebral haemorrhage [Fatal]
  - Depressed level of consciousness [Fatal]
  - Heart rate decreased [Unknown]
  - Dyslalia [Fatal]

NARRATIVE: CASE EVENT DATE: 20201101
